FAERS Safety Report 15276724 (Version 3)
Quarter: 2019Q2

REPORT INFORMATION
  Report Type: Spontaneous
  Country: US (occurrence: US)
  Receive Date: 20180814
  Receipt Date: 20190404
  Transmission Date: 20190711
  Serious: Yes (Other)
  Sender: FDA-Public Use
  Company Number: US-PFIZER INC-2018324868

PATIENT
  Age: 84 Year
  Sex: Female
  Weight: 59 kg

DRUGS (3)
  1. PREMARIN [Suspect]
     Active Substance: ESTROGENS, CONJUGATED
     Dosage: UNK
     Dates: end: 20180807
  2. PREMARIN [Suspect]
     Active Substance: ESTROGENS, CONJUGATED
     Indication: ATROPHIC VULVOVAGINITIS
     Dosage: 1 DF, SINGLE 0.5 APPLICATION
     Route: 067
  3. PREMARIN [Suspect]
     Active Substance: ESTROGENS, CONJUGATED
     Indication: UTERINE PROLAPSE
     Dosage: UNK, 2X/DAY (1-APPLICATOR)
     Dates: start: 20180730, end: 20180730

REACTIONS (2)
  - Vaginal haemorrhage [Recovered/Resolved]
  - Product complaint [Recovered/Resolved]

NARRATIVE: CASE EVENT DATE: 20180730
